FAERS Safety Report 5973607-8 (Version None)
Quarter: 2008Q4

REPORT INFORMATION
  Report Type: 
  Country: None (occurrence: None)
  Receive Date: 20081201
  Receipt Date: 20081124
  Transmission Date: 20090506
  Serious: Yes (Hospitalization, Other)
  Sender: FDA-Public Use
  Company Number: US-ELI_LILLY_AND_COMPANY-US200809000745

PATIENT
  Sex: Female
  Weight: 90.703 kg

DRUGS (18)
  1. BYETTA [Suspect]
     Indication: TYPE 2 DIABETES MELLITUS
     Dosage: 10 UG, 2/D
     Dates: start: 20060517, end: 20080826
  2. GLYBURIDE [Concomitant]
     Dosage: 5 MG, 2/D
  3. LANTUS [Concomitant]
     Dosage: 10 U, EACH EVENING
     Route: 058
  4. FLOVENT HFA [Concomitant]
  5. ZOCOR [Concomitant]
     Dosage: 20 MG, UNK
  6. LISINOPRIL [Concomitant]
     Dosage: 5 MG, UNK
  7. FUROSEMIDE [Concomitant]
     Dosage: 80 MG, UNK
  8. TERAZOSIN HYDROCHLORIDE [Concomitant]
     Dosage: 2 MG, UNK
  9. CELEXA [Concomitant]
     Dosage: 10 MG, UNK
  10. ATENOLOL [Concomitant]
     Dosage: 50 MG, UNK
  11. FLONASE [Concomitant]
  12. ULTRAM [Concomitant]
     Dosage: 100 MG, AS NEEDED
  13. NEURONTIN [Concomitant]
     Dosage: 400 MG, UNK
  14. ALBUTEROL [Concomitant]
  15. POTASSIUM CHLORIDE [Concomitant]
     Dosage: 10 MEQ, DAILY (1/D)
  16. MULTI-VIT [Concomitant]
  17. CALCIUM CARBONATE [Concomitant]
     Dosage: 600 MG, UNK
  18. ASPIRIN [Concomitant]
     Dosage: 81 MG, UNK

REACTIONS (6)
  - ABDOMINAL PAIN [None]
  - BLOOD AMYLASE INCREASED [None]
  - LIPASE INCREASED [None]
  - NAUSEA [None]
  - PANCREATITIS [None]
  - PANCREATOLITHIASIS [None]
